FAERS Safety Report 10015907 (Version 1)
Quarter: 2014Q1

REPORT INFORMATION
  Report Type: Spontaneous
  Country: US (occurrence: US)
  Receive Date: 20140317
  Receipt Date: 20140317
  Transmission Date: 20141002
  Serious: Yes (Hospitalization)
  Sender: FDA-Public Use
  Company Number: US-B.I. PHARMACEUTICALS,INC./RIDGEFIELD-2014-BI-11284BP

PATIENT
  Sex: Female
  Weight: 57 kg

DRUGS (3)
  1. COMBIVENT [Suspect]
     Indication: ASTHMA
     Dosage: STRENGTH: 18 MCG/103 MCG; DAILY DOSE: 216 MCG/1236 MCG
     Route: 055
     Dates: start: 2010, end: 20140310
  2. DIAZIDE [Concomitant]
     Indication: HYPERTENSION
     Route: 065
  3. CARDIZEM [Concomitant]
     Indication: HYPERTENSION
     Route: 065

REACTIONS (4)
  - Pleurisy [Recovered/Resolved]
  - Pneumonia [Recovered/Resolved]
  - Bronchitis [Recovered/Resolved]
  - Off label use [Recovered/Resolved]
